FAERS Safety Report 22166135 (Version 1)
Quarter: 2023Q1

REPORT INFORMATION
  Report Type: Spontaneous
  Country: US (occurrence: None)
  Receive Date: 20230331
  Receipt Date: 20230331
  Transmission Date: 20230417
  Serious: Yes (Life-Threatening)
  Sender: FDA-Public Use
  Company Number: None

PATIENT
  Age: 55 Year
  Sex: Female
  Weight: 70.8 kg

DRUGS (12)
  1. NIRAPARIB [Suspect]
     Active Substance: NIRAPARIB
     Indication: Breast cancer metastatic
     Dosage: FREQUENCY : DAILY;?
     Route: 048
     Dates: start: 20220915, end: 20220928
  2. INVESTIGATIONAL PRODUCT [Suspect]
     Active Substance: INVESTIGATIONAL PRODUCT
     Indication: Breast cancer metastatic
     Dosage: OTHER FREQUENCY : EVERY 3 WEEKS;?
     Route: 042
     Dates: start: 20220915, end: 20220915
  3. OXYCODONE [Concomitant]
  4. Vitamin [Concomitant]
  5. Vitamin B12 [Concomitant]
  6. Folate/Folic acid [Concomitant]
  7. CALCIUM [Concomitant]
  8. MAGNESIUM [Concomitant]
  9. Compazine [Concomitant]
  10. Zofran [Concomitant]
  11. Wellbutrin 150mg Daily [Concomitant]
  12. Prozac 20mg Daily [Concomitant]

REACTIONS (5)
  - Thrombocytopenia [None]
  - Anaemia [None]
  - Confusional state [None]
  - Hepatic enzyme increased [None]
  - Platelet count decreased [None]

NARRATIVE: CASE EVENT DATE: 20221006
